FAERS Safety Report 10009956 (Version 2)
Quarter: 2014Q1

REPORT INFORMATION
  Report Type: Spontaneous
  Country: US (occurrence: US)
  Receive Date: 20140312
  Receipt Date: 20140312
  Transmission Date: 20141002
  Serious: No
  Sender: FDA-Public Use
  Company Number: US-INCYTE CORPORATION-2013IN000735

PATIENT
  Age: 83 Year
  Sex: Male
  Weight: 68.03 kg

DRUGS (13)
  1. JAKAFI [Suspect]
     Indication: MYELOFIBROSIS
     Dosage: 20 MG, BID
     Route: 048
     Dates: start: 20130418
  2. JAKAFI [Suspect]
     Dosage: 20 MG, QD
     Route: 048
     Dates: end: 201306
  3. LEVOTHYROXINE [Concomitant]
  4. PREVACID [Concomitant]
  5. LOMOTIL [Concomitant]
  6. ZYRTEC [Concomitant]
  7. BABY ASPIRIN [Concomitant]
  8. HYDROXYUREA [Concomitant]
  9. ALLOPURINOL [Concomitant]
  10. IRON GLUTAMATE [Concomitant]
  11. VITAMIN B 12 [Concomitant]
  12. FISH OIL [Concomitant]
  13. GLUCOSAMINE W/CHONDROITIN [Concomitant]

REACTIONS (6)
  - Weight decreased [Unknown]
  - Skin discolouration [Unknown]
  - Hypoaesthesia [Unknown]
  - Dizziness [Unknown]
  - Haemoglobin decreased [Not Recovered/Not Resolved]
  - Fatigue [Not Recovered/Not Resolved]
